FAERS Safety Report 25130940 (Version 2)
Quarter: 2025Q2

REPORT INFORMATION
  Report Type: Spontaneous
  Country: US (occurrence: US)
  Receive Date: 20250327
  Receipt Date: 20250522
  Transmission Date: 20250717
  Serious: No
  Sender: BLUEPRINT MEDICINES
  Company Number: US-Blueprint Medicines Corporation-2025-AER-00571

PATIENT
  Age: 73 Year
  Sex: Male

DRUGS (2)
  1. AYVAKIT [Suspect]
     Active Substance: AVAPRITINIB
     Indication: Advanced systemic mastocytosis
     Route: 048
     Dates: start: 20250212
  2. AYVAKIT [Suspect]
     Active Substance: AVAPRITINIB
     Route: 065
     Dates: start: 20250212

REACTIONS (11)
  - Swelling face [Unknown]
  - Periorbital swelling [Unknown]
  - Oropharyngeal pain [Unknown]
  - Throat irritation [Unknown]
  - Dysphagia [Unknown]
  - Asthenia [Unknown]
  - Gait disturbance [Unknown]
  - Limb discomfort [Unknown]
  - Dyspnoea exertional [Unknown]
  - Headache [Unknown]
  - Loss of personal independence in daily activities [Unknown]
